FAERS Safety Report 10216066 (Version 1)
Quarter: 2014Q2

REPORT INFORMATION
  Report Type: Spontaneous
  Country: DE (occurrence: DE)
  Receive Date: 20140604
  Receipt Date: 20140604
  Transmission Date: 20141212
  Serious: Yes (Other)
  Sender: FDA-Public Use
  Company Number: DE-RANBAXY-2014RR-81861

PATIENT
  Age: 30 Year
  Sex: Female
  Weight: 87 kg

DRUGS (3)
  1. SERTRALINE [Suspect]
     Indication: BIPOLAR DISORDER
     Dosage: 50 MG, QD, DURING GESTATIONAL WEEKS 11.4 - 34.2
     Route: 048
     Dates: start: 20130304, end: 20130810
  2. SEROQUEL PROLONG [Suspect]
     Indication: BIPOLAR DISORDER
     Dosage: 150 MG, DAILY, DOSE REDUCED TO 50 MG/DAY AT SIXTH MONTH
     Route: 048
     Dates: start: 20121213, end: 20130810
  3. FEMIBION SCHWANGERSCHAFT 1 [Concomitant]
     Indication: PROPHYLAXIS OF NEURAL TUBE DEFECT
     Dosage: 0.8 MG, QD, DOSE REDUCED TO 0.4 MG/DAY FROM SECOND TRIMESTER
     Route: 048
     Dates: start: 20130115

REACTIONS (3)
  - Foetal death [Recovered/Resolved]
  - Glucose tolerance impaired in pregnancy [Recovered/Resolved]
  - Placental insufficiency [Recovered/Resolved]
